FAERS Safety Report 7560321-0 (Version None)
Quarter: 2011Q2

REPORT INFORMATION
  Report Type: 
  Country: None (occurrence: None)
  Receive Date: 20110614
  Receipt Date: 20110601
  Transmission Date: 20111010
  Serious: Yes (Other)
  Sender: FDA-Public Use
  Company Number: 2011MA006672

PATIENT
  Age: 5 Year
  Sex: Male

DRUGS (7)
  1. CLONAZEPAM [Concomitant]
  2. VALPROATE SODIUM [Concomitant]
  3. LEVETIRACETAM [Concomitant]
  4. PHENOBARBITAL TAB [Suspect]
     Indication: CONVULSION
     Dosage: 1.5 MG/KG;QD
  5. CARBAMAZEPINE [Concomitant]
  6. TOPIRATE [Concomitant]
  7. LAMOTRIGINE [Concomitant]

REACTIONS (10)
  - COGNITIVE DISORDER [None]
  - CONDITION AGGRAVATED [None]
  - HYPERAMMONAEMIC ENCEPHALOPATHY [None]
  - CONVULSION [None]
  - LETHARGY [None]
  - DECREASED APPETITE [None]
  - BLOOD UREA DECREASED [None]
  - SOMNOLENCE [None]
  - CIRCADIAN RHYTHM SLEEP DISORDER [None]
  - GLIOSIS [None]
